FAERS Safety Report 15723006 (Version 1)
Quarter: 2018Q4

REPORT INFORMATION
  Report Type: Spontaneous
  Country: US (occurrence: US)
  Receive Date: 20181214
  Receipt Date: 20181214
  Transmission Date: 20190205
  Serious: Yes (Disabling)
  Sender: FDA-Public Use
  Company Number: US-TEVA-2018-US-985571

PATIENT

DRUGS (3)
  1. TAXOTERE [Suspect]
     Active Substance: DOCETAXEL
     Dates: start: 20151110, end: 20160301
  2. DOCEFREZ [Suspect]
     Active Substance: DOCETAXEL ANHYDROUS
     Dates: start: 20151110, end: 20160301
  3. DOCETAXEL. [Suspect]
     Active Substance: DOCETAXEL
     Dates: start: 20151110, end: 20160301

REACTIONS (1)
  - Alopecia [Unknown]
